FAERS Safety Report 5528984-9 (Version None)
Quarter: 2007Q4

REPORT INFORMATION
  Report Type: 
  Country: None (occurrence: None)
  Receive Date: 20071109
  Receipt Date: 20070706
  Transmission Date: 20080405
  Serious: Yes (Other)
  Sender: FDA-Public Use
  Company Number: PHEH2005US09568

PATIENT
  Age: 51 Year
  Sex: Female
  Weight: 61.2 kg

DRUGS (7)
  1. ESTRADERM [Suspect]
     Indication: MENOPAUSE
     Dosage: TRANSDERMAL
     Route: 062
     Dates: start: 19950901, end: 19951101
  2. PREMPRO [Suspect]
     Dates: start: 19960601, end: 19960601
  3. PREMARIN [Suspect]
     Indication: MENOPAUSE
     Dosage: 0.625 MG, ORAL
     Route: 048
     Dates: start: 19921001, end: 19970701
  4. PROVERA [Suspect]
     Indication: MENOPAUSE
     Dosage: 5/2.5 MG DAY 1 4, ORAL
     Route: 048
     Dates: start: 19921001, end: 19970701
  5. OGEN [Suspect]
     Dosage: VAGINAL
     Route: 067
     Dates: start: 19920601, end: 19930401
  6. PREMARIN [Suspect]
  7. XANAX [Concomitant]

REACTIONS (25)
  - ASPIRATION BIOPSY [None]
  - BONE GIANT CELL TUMOUR [None]
  - BREAST CANCER [None]
  - BREAST CANCER IN SITU [None]
  - BREAST CANCER STAGE I [None]
  - BREAST CANCER STAGE II [None]
  - BREAST COSMETIC SURGERY [None]
  - BREAST MASS [None]
  - BREAST NECROSIS [None]
  - BREAST RECONSTRUCTION [None]
  - EXCESSIVE GRANULATION TISSUE [None]
  - FIBROCYSTIC BREAST DISEASE [None]
  - INJURY [None]
  - MALIGNANT TUMOUR EXCISION [None]
  - MAMMOGRAM [None]
  - MASTECTOMY [None]
  - MEDICAL DEVICE REMOVAL [None]
  - MUSCLE ATROPHY [None]
  - MUSCLE FLAP OPERATION [None]
  - OESTROGEN RECEPTOR ASSAY NEGATIVE [None]
  - OESTROGEN RECEPTOR ASSAY POSITIVE [None]
  - PAIN [None]
  - PHYSICAL DISABILITY [None]
  - PROGESTERONE RECEPTOR ASSAY NEGATIVE [None]
  - RADICAL MASTECTOMY [None]
